FAERS Safety Report 8799735 (Version 2)
Quarter: 2013Q4

REPORT INFORMATION
  Report Type: Spontaneous
  Country: JP (occurrence: None)
  Receive Date: 20120914
  Receipt Date: 20131009
  Transmission Date: 20140711
  Serious: Yes (Other)
  Sender: FDA-Public Use
  Company Number: 2009JP006820

PATIENT
  Age: 34 Year
  Sex: Female
  Weight: 61.6 kg

DRUGS (11)
  1. TACROLIMUS [Suspect]
     Indication: LUPUS NEPHRITIS
     Dosage: 3 MG, UNKNOWN/D, ORAL
     Route: 048
     Dates: start: 20080820
  2. PREDNISOLONE [Concomitant]
  3. ACINON (NIZATIDINE) [Concomitant]
  4. ACTONEL (RISEDRONATE SODIUM) [Concomitant]
  5. ACTONEL (RISEDRONATE SODIUM) [Concomitant]
  6. PERSANTIN (DIPYRIDAMOLE) [Concomitant]
  7. LIPITOR (ATORVASTATIN CALCIUM) [Concomitant]
  8. OLMETEC (OLMESARTAN MEDOXOMIL) [Concomitant]
  9. BAYASPIRIN (ACETYLSALICYLIC ACID) [Concomitant]
  10. METHYLPREDNISOLONE SODIUM SUCCINATE [Concomitant]
  11. JUVELA N (TOPCOPHERYL NICOTINATE) [Concomitant]

REACTIONS (7)
  - Upper respiratory tract inflammation [None]
  - Hypertension [None]
  - Hyperlipidaemia [None]
  - Herpes zoster [None]
  - Ovarian cyst [None]
  - Anaemia [None]
  - Fungal skin infection [None]
